FAERS Safety Report 24218324 (Version 1)
Quarter: 2024Q3

REPORT INFORMATION
  Report Type: Report from Study
  Country: US (occurrence: US)
  Receive Date: 20240816
  Receipt Date: 20240816
  Transmission Date: 20241016
  Serious: Yes (Hospitalization)
  Sender: ABBVIE
  Company Number: US-ABBVIE-5875345

PATIENT
  Age: 19 Year
  Sex: Male

DRUGS (1)
  1. HUMIRA [Suspect]
     Active Substance: ADALIMUMAB
     Indication: Product used for unknown indication
     Route: 058
     Dates: start: 2014

REACTIONS (8)
  - Medical device implantation [Unknown]
  - Inflammatory marker decreased [Recovering/Resolving]
  - Pelvic discomfort [Unknown]
  - Gastrectomy [Unknown]
  - Colitis ulcerative [Recovering/Resolving]
  - Post procedural complication [Unknown]
  - Ulcer [Recovering/Resolving]
  - Pelvic pain [Unknown]

NARRATIVE: CASE EVENT DATE: 20200101
